FAERS Safety Report 5321412-8 (Version None)
Quarter: 2007Q2

REPORT INFORMATION
  Report Type: 
  Country: None (occurrence: None)
  Receive Date: 20070510
  Receipt Date: 20070501
  Transmission Date: 20071010
  Serious: Yes (Death, Hospitalization)
  Sender: FDA-Public Use
  Company Number: US-AMGEN-US195316

PATIENT
  Sex: Male

DRUGS (4)
  1. ENBREL [Suspect]
     Indication: RHEUMATOID ARTHRITIS
     Route: 065
     Dates: start: 20021107, end: 20050910
  2. REMICADE [Suspect]
     Indication: RHEUMATOID ARTHRITIS
     Route: 042
     Dates: start: 20050601, end: 20060125
  3. CELEBREX [Concomitant]
     Route: 065
  4. METHOTREXATE [Concomitant]
     Route: 065
     Dates: start: 20020805, end: 20051212

REACTIONS (2)
  - HEPATIC NEOPLASM MALIGNANT [None]
  - RESPIRATORY FAILURE [None]
